FAERS Safety Report 8416755-5 (Version None)
Quarter: 2012Q2

REPORT INFORMATION
  Report Type: 
  Country: None (occurrence: None)
  Receive Date: 20120606
  Receipt Date: 20120523
  Transmission Date: 20120825
  Serious: Yes (Other)
  Sender: FDA-Public Use
  Company Number: GB-WATSON-2012-09327

PATIENT
  Age: 43 Year
  Sex: Female

DRUGS (1)
  1. TRELSTAR [Suspect]
     Indication: MENORRHAGIA
     Dosage: UNK
     Route: 065

REACTIONS (1)
  - BENIGN INTRACRANIAL HYPERTENSION [None]
